FAERS Safety Report 15166117 (Version 7)
Quarter: 2020Q1

REPORT INFORMATION
  Report Type: Spontaneous
  Country: PL (occurrence: PL)
  Receive Date: 20180719
  Receipt Date: 20200124
  Transmission Date: 20200409
  Serious: Yes (Life-Threatening, Hospitalization, Other)
  Sender: FDA-Public Use
  Company Number: PL-MYLANLABS-2018M1052089

PATIENT
  Age: 20 Year
  Sex: Female

DRUGS (15)
  1. CYTARABINE. [Suspect]
     Active Substance: CYTARABINE
     Dosage: 95 MILLIGRAM/SQ. METER, QD
     Route: 042
     Dates: start: 20161228, end: 20161230
  2. IDARUBICIN [Concomitant]
     Active Substance: IDARUBICIN
     Dosage: 6.7 MILLIGRAM/SQ. METER
     Route: 042
     Dates: start: 20161013, end: 20161016
  3. CYTARABINE. [Suspect]
     Active Substance: CYTARABINE
     Indication: ACUTE PROMYELOCYTIC LEUKAEMIA
     Dosage: 100 MG/M2, QD, CONTINUOUS INFUSION, DAY 1-3
     Route: 041
     Dates: start: 20160826, end: 20160828
  4. DAUNORUBICIN [Suspect]
     Active Substance: DAUNORUBICIN
     Dosage: 40 MILLIGRAM/SQ. METER, CYCLE
     Route: 042
     Dates: start: 20160826, end: 20160828
  5. TRETINOIN. [Suspect]
     Active Substance: TRETINOIN
     Dosage: 25 MILLIGRAM/SQ. METER
     Route: 048
     Dates: start: 20161128, end: 20161213
  6. IDARUBICIN [Concomitant]
     Active Substance: IDARUBICIN
     Indication: ACUTE PROMYELOCYTIC LEUKAEMIA
     Dosage: 9.5 MILLIGRAM/SQ. METER
     Route: 042
     Dates: start: 20161228, end: 20161228
  7. TRETINOIN. [Suspect]
     Active Substance: TRETINOIN
     Dosage: 25 MILLIGRAM/SQ. METER
     Route: 048
     Dates: start: 20161228, end: 20170111
  8. LYNESTRENOL [Concomitant]
     Active Substance: LYNESTRENOL
     Indication: METRORRHAGIA
     Dosage: UNK
     Route: 065
  9. TRETINOIN. [Suspect]
     Active Substance: TRETINOIN
     Indication: ACUTE PROMYELOCYTIC LEUKAEMIA
     Dosage: 25 MILLIGRAM/SQ. METER
     Route: 048
     Dates: start: 20160901
  10. CLADRIBINE. [Suspect]
     Active Substance: CLADRIBINE
     Indication: ACUTE PROMYELOCYTIC LEUKAEMIA
     Dosage: 5 MG/M2, QD (DAY 1-3)
     Route: 042
     Dates: start: 20160826, end: 20160828
  11. LYNESTRENOL [Concomitant]
     Active Substance: LYNESTRENOL
     Indication: MENSTRUAL CYCLE MANAGEMENT
  12. OXYGEN. [Concomitant]
     Active Substance: OXYGEN
     Indication: PRODUCT USED FOR UNKNOWN INDICATION
     Dosage: UNK, PASSIVE OXYGEN
  13. MITOXANTRONE [Concomitant]
     Active Substance: MITOXANTRONE HYDROCHLORIDE
     Indication: ACUTE PROMYELOCYTIC LEUKAEMIA
     Dosage: 9 MILLIGRAM/SQ. METER
     Route: 042
     Dates: start: 20161128, end: 20161130
  14. DAUNORUBICIN [Suspect]
     Active Substance: DAUNORUBICIN
     Indication: ACUTE PROMYELOCYTIC LEUKAEMIA
     Dosage: 40 MG/M2, UNK (DAY 1)
     Route: 042
     Dates: start: 20160826, end: 20160826
  15. RETINOIC ACID [Concomitant]
     Active Substance: TRETINOIN
     Indication: ACUTE PROMYELOCYTIC LEUKAEMIA
     Dosage: 25 MG/M2, UNK
     Route: 048
     Dates: start: 20160826

REACTIONS (9)
  - Condition aggravated [Recovering/Resolving]
  - Leukopenia [Recovered/Resolved]
  - Headache [Recovered/Resolved]
  - Thrombocytopenia [Recovered/Resolved]
  - Off label use [Recovered/Resolved]
  - Pyrexia [Recovered/Resolved]
  - Neutrophil count decreased [Recovering/Resolving]
  - Anaemia [Recovered/Resolved]
  - Diarrhoea [Recovered/Resolved]

NARRATIVE: CASE EVENT DATE: 201608
